FAERS Safety Report 6891483-6 (Version None)
Quarter: 2010Q3

REPORT INFORMATION
  Report Type: 
  Country: None (occurrence: None)
  Receive Date: 20100731
  Receipt Date: 20070803
  Transmission Date: 20110219
  Serious: No
  Sender: FDA-Public Use
  Company Number: US-PFIZER INC-2007063005

PATIENT
  Sex: Female
  Weight: 58.06 kg

DRUGS (6)
  1. NORVASC [Suspect]
     Indication: HYPERTENSION
     Dates: start: 20060101
  2. MINIPRESS [Concomitant]
  3. HYDROCHLOROTHIAZIDE [Concomitant]
  4. K-TAB [Concomitant]
  5. XALATAN [Concomitant]
  6. ALPHAGAN [Concomitant]

REACTIONS (1)
  - BREAST SWELLING [None]
